FAERS Safety Report 14614076 (Version 2)
Quarter: 2018Q1

REPORT INFORMATION
  Report Type: Report from Study
  Country: DE (occurrence: DE)
  Receive Date: 20180308
  Receipt Date: 20180316
  Transmission Date: 20180509
  Serious: Yes (Hospitalization, Other)
  Sender: FDA-Public Use
  Company Number: DE-PFIZER INC-2018092500

PATIENT
  Age: 62 Year
  Sex: Female
  Weight: 66 kg

DRUGS (44)
  1. PACLITAXEL. [Concomitant]
     Active Substance: PACLITAXEL
     Dosage: 80 MG/M2, UNK
     Route: 042
     Dates: start: 20121210
  2. PRADAXA [Concomitant]
     Active Substance: DABIGATRAN ETEXILATE MESYLATE
     Dosage: 220 MG, 1X/DAY
     Route: 048
     Dates: start: 201105
  3. PACLITAXEL. [Concomitant]
     Active Substance: PACLITAXEL
     Dosage: 80 MG, UNK
     Route: 042
     Dates: start: 20121112
  4. PACLITAXEL. [Concomitant]
     Active Substance: PACLITAXEL
     Dosage: 80 MG, UNK
     Route: 042
     Dates: start: 20121119
  5. LOSARTAN. [Concomitant]
     Active Substance: LOSARTAN
     Dosage: 100 MG, 1X/DAY
     Route: 048
     Dates: start: 20110515
  6. BISOPROLOL [Concomitant]
     Active Substance: BISOPROLOL
     Dosage: 5 MG, 1X/DAY
  7. TORASEMIDE [Concomitant]
     Active Substance: TORSEMIDE
     Indication: HYPERTENSION
     Dosage: 10 MG, 1X/DAY
     Route: 048
     Dates: start: 20110615
  8. TORASEMIDE [Concomitant]
     Active Substance: TORSEMIDE
     Dosage: 20 MG, 1X/DAY
  9. PACLITAXEL. [Concomitant]
     Active Substance: PACLITAXEL
     Dosage: 80 MG/M2, UNK
     Route: 042
     Dates: start: 20130730
  10. PACLITAXEL. [Concomitant]
     Active Substance: PACLITAXEL
     Dosage: 80 MG, UNK
     Route: 042
     Dates: start: 20121015
  11. L-THYROXIN [Concomitant]
     Active Substance: LEVOTHYROXINE SODIUM
     Dosage: 50 UG, 1X/DAY
     Route: 048
     Dates: start: 2010
  12. RAMIPRIL. [Concomitant]
     Active Substance: RAMIPRIL
     Indication: HYPERTENSION
     Dosage: 5 MG, 1X/DAY
     Route: 048
     Dates: start: 20110615, end: 2014
  13. PACLITAXEL. [Concomitant]
     Active Substance: PACLITAXEL
     Indication: BREAST CANCER
     Dosage: 80 MG/M2. 13 CYCLES
     Route: 042
     Dates: start: 20120928, end: 201212
  14. PACLITAXEL. [Concomitant]
     Active Substance: PACLITAXEL
     Dosage: 144 MG. 24 CYCLES.
     Route: 042
     Dates: start: 20130806, end: 20131015
  15. PACLITAXEL. [Concomitant]
     Active Substance: PACLITAXEL
     Dosage: 144 MG, UNK
     Route: 042
     Dates: start: 20130903
  16. PACLITAXEL. [Concomitant]
     Active Substance: PACLITAXEL
     Dosage: 80 MG/M2, UNK
     Route: 042
     Dates: start: 20121029
  17. LOSARTAN. [Concomitant]
     Active Substance: LOSARTAN
     Indication: HYPERTENSION
     Dosage: 25 MG, 1X/DAY
  18. SPIRONOLACTON [Concomitant]
     Active Substance: SPIRONOLACTONE
     Indication: CARDIAC FAILURE
     Dosage: 25 MG, 1X/DAY
     Route: 048
     Dates: start: 20110515
  19. SPIRONOLACTON [Concomitant]
     Active Substance: SPIRONOLACTONE
     Dosage: 50 MG, 1X/DAY
  20. PACLITAXEL. [Concomitant]
     Active Substance: PACLITAXEL
     Dosage: 144 MG, UNK
     Route: 042
     Dates: start: 20131001
  21. PACLITAXEL. [Concomitant]
     Active Substance: PACLITAXEL
     Dosage: 144 MG, UNK
     Route: 042
     Dates: start: 20130820
  22. PACLITAXEL. [Concomitant]
     Active Substance: PACLITAXEL
     Dosage: 80 MG, UNK
     Route: 042
     Dates: start: 20121203
  23. CARBOPLATIN. [Suspect]
     Active Substance: CARBOPLATIN
     Indication: BREAST CANCER
     Dosage: UNK
  24. BEVACIZUMAB. [Suspect]
     Active Substance: BEVACIZUMAB
     Dosage: 975 MG, UNK
     Route: 042
     Dates: start: 20140108
  25. PACLITAXEL. [Concomitant]
     Active Substance: PACLITAXEL
     Dosage: 144 MG, UNK
     Route: 042
     Dates: start: 20130917
  26. PACLITAXEL. [Concomitant]
     Active Substance: PACLITAXEL
     Dosage: 144 MG, UNK
     Route: 042
     Dates: start: 20130924
  27. PACLITAXEL. [Concomitant]
     Active Substance: PACLITAXEL
     Dosage: 144 MG, UNK
     Route: 042
     Dates: start: 20130827
  28. PACLITAXEL. [Concomitant]
     Active Substance: PACLITAXEL
     Dosage: 144 MG, UNK
     Route: 042
     Dates: start: 20130910
  29. BEVACIZUMAB. [Suspect]
     Active Substance: BEVACIZUMAB
     Dosage: 8 CYCLES
     Route: 042
     Dates: start: 201307, end: 20131212
  30. PACLITAXEL. [Concomitant]
     Active Substance: PACLITAXEL
     Dosage: 80 MG, UNK
     Route: 042
     Dates: start: 20121228
  31. PACLITAXEL. [Concomitant]
     Active Substance: PACLITAXEL
     Dosage: 80 MG, UNK
     Route: 042
     Dates: start: 20131008
  32. PACLITAXEL. [Concomitant]
     Active Substance: PACLITAXEL
     Dosage: 80 MG, UNK
     Route: 042
     Dates: start: 20121126
  33. PACLITAXEL. [Concomitant]
     Active Substance: PACLITAXEL
     Dosage: 144 MG, UNK
     Route: 042
     Dates: start: 20130903
  34. L-THYROXIN [Concomitant]
     Active Substance: LEVOTHYROXINE SODIUM
     Indication: HYPOTHYROIDISM
     Dosage: 125 UG, UNK
     Route: 065
  35. PRADAXA [Concomitant]
     Active Substance: DABIGATRAN ETEXILATE MESYLATE
     Indication: CORONARY ARTERY DISEASE
     Dosage: 220 MG, 1X/DAY
  36. BISOPROLOL [Concomitant]
     Active Substance: BISOPROLOL
     Indication: HYPERTENSION
     Dosage: 12.5 MG, 1X/DAY
     Route: 048
     Dates: start: 20110615
  37. BEVACIZUMAB. [Suspect]
     Active Substance: BEVACIZUMAB
     Indication: BREAST CANCER
     Dosage: 990 MG, CYCLIC (EVERY 3 WEEKS) (4 CYCLES)
     Route: 042
     Dates: start: 20120928, end: 20140108
  38. PACLITAXEL. [Concomitant]
     Active Substance: PACLITAXEL
     Dosage: 80 MG, UNK
     Route: 042
     Dates: start: 20121105
  39. PACLITAXEL. [Concomitant]
     Active Substance: PACLITAXEL
     Dosage: 80 MG, UNK
     Route: 042
     Dates: start: 20131015
  40. PACLITAXEL. [Concomitant]
     Active Substance: PACLITAXEL
     Dosage: 80 MG, UNK
     Route: 042
     Dates: start: 20121008
  41. PACLITAXEL. [Concomitant]
     Active Substance: PACLITAXEL
     Dosage: 80 MG, UNK
     Route: 042
     Dates: start: 20121022
  42. TRIAMTERENE AND HYDROCHLOROTHIAZID [Concomitant]
     Active Substance: HYDROCHLOROTHIAZIDE\TRIAMTERENE
     Indication: CARDIAC FAILURE
     Dosage: 12.5 MG, 1X/DAY
     Route: 048
     Dates: start: 20110615
  43. PANTOPRAZOL [Concomitant]
     Active Substance: PANTOPRAZOLE SODIUM
     Indication: PROPHYLAXIS
     Dosage: 20 MG, 1X/DAY
  44. PANTOPRAZOL [Concomitant]
     Active Substance: PANTOPRAZOLE SODIUM
     Dosage: 20 MG, UNK
     Route: 048
     Dates: start: 201209

REACTIONS (24)
  - Mucosal inflammation [Recovered/Resolved]
  - Blood creatinine increased [Unknown]
  - Thyroiditis [Unknown]
  - Tachyarrhythmia [Unknown]
  - Urticaria [Recovered/Resolved]
  - Alopecia [Recovered/Resolved]
  - Hyponatraemia [Unknown]
  - Cardiac failure [Recovered/Resolved with Sequelae]
  - Panic attack [Recovered/Resolved]
  - Insomnia [Recovered/Resolved]
  - Oesophagitis [Recovered/Resolved]
  - Fatigue [Recovered/Resolved]
  - Congestive cardiomyopathy [Unknown]
  - Palmar-plantar erythrodysaesthesia syndrome [Recovered/Resolved]
  - Dyspnoea [Recovered/Resolved]
  - Skin reaction [Recovered/Resolved]
  - Erythema [Recovered/Resolved]
  - Dry skin [Recovered/Resolved]
  - Eye irritation [Recovered/Resolved]
  - Pulmonary hypertension [Unknown]
  - General physical health deterioration [Recovering/Resolving]
  - Atrial fibrillation [Unknown]
  - Lacrimation increased [Recovered/Resolved]
  - Pain in extremity [Recovered/Resolved]

NARRATIVE: CASE EVENT DATE: 20121012
